FAERS Safety Report 15704392 (Version 2)
Quarter: 2018Q4

REPORT INFORMATION
  Report Type: Spontaneous
  Country: BG (occurrence: BG)
  Receive Date: 20181210
  Receipt Date: 20181222
  Transmission Date: 20190205
  Serious: Yes (Other)
  Sender: FDA-Public Use
  Company Number: BG-AMGEN-BGRSP2018173974

PATIENT
  Age: 64 Year

DRUGS (7)
  1. PREDNISOLONE. [Concomitant]
     Active Substance: PREDNISOLONE
     Dosage: UNK
     Route: 065
  2. XGEVA [Suspect]
     Active Substance: DENOSUMAB
     Indication: ENDOMETRIAL ADENOCARCINOMA
     Dosage: 120 MG, Q4WK
     Route: 042
     Dates: start: 20180105
  3. ZOLEDRONIC ACID. [Concomitant]
     Active Substance: ZOLEDRONIC ACID
     Dosage: UNK
     Route: 065
  4. CABAZITAXEL [Suspect]
     Active Substance: CABAZITAXEL
     Indication: ENDOMETRIAL ADENOCARCINOMA
     Dosage: 20 MG/M2, Q3WK
     Route: 042
     Dates: start: 20180105, end: 20180105
  5. DOCETAXEL. [Concomitant]
     Active Substance: DOCETAXEL
     Dosage: UNK
     Route: 065
  6. BICALUTAMID [Concomitant]
     Active Substance: BICALUTAMIDE
     Dosage: UNK
     Route: 065
  7. FLUTAMIDE. [Concomitant]
     Active Substance: FLUTAMIDE
     Dosage: UNK
     Route: 065

REACTIONS (3)
  - Osteonecrosis of jaw [Not Recovered/Not Resolved]
  - Neuropathy peripheral [Recovering/Resolving]
  - Anaemia [Not Recovered/Not Resolved]
